FAERS Safety Report 23697828 (Version 2)
Quarter: 2024Q2

REPORT INFORMATION
  Report Type: Spontaneous
  Country: US (occurrence: US)
  Receive Date: 20240402
  Receipt Date: 20240430
  Transmission Date: 20240716
  Serious: No
  Sender: FDA-Public Use
  Company Number: US-PFIZER INC-202400074527

PATIENT
  Age: 15 Year
  Sex: Male
  Weight: 39.46 kg

DRUGS (1)
  1. GENOTROPIN [Suspect]
     Active Substance: SOMATROPIN
     Indication: Short stature
     Dosage: 1.8 MILLIGRAMS, ONCE A DAY
     Dates: start: 2023

REACTIONS (1)
  - Device leakage [Unknown]
